FAERS Safety Report 4811062-1 (Version None)
Quarter: 2005Q4

REPORT INFORMATION
  Report Type: 
  Country: None (occurrence: None)
  Receive Date: 20051025
  Receipt Date: 20051013
  Transmission Date: 20060501
  Serious: Yes (Other)
  Sender: FDA-Public Use
  Company Number: 2005-10-0361

PATIENT
  Age: 42 Year
  Sex: Male
  Weight: 97.977 kg

DRUGS (7)
  1. TEMODAR [Suspect]
     Indication: BRAIN NEOPLASM
     Dosage: 160 MG QD ORAL
     Route: 048
     Dates: start: 20050906, end: 20050930
  2. TEMODAR [Suspect]
     Indication: BRAIN NEOPLASM
     Dosage: 160 MG QD ORAL
     Route: 048
     Dates: start: 20050906, end: 20051007
  3. TEMODAR [Suspect]
     Indication: BRAIN NEOPLASM
     Dosage: 160 MG QD ORAL
     Route: 048
     Dates: start: 20051003, end: 20051007
  4. DECADRON [Suspect]
     Indication: OEDEMA
     Dosage: 2 MG BID ORAL
     Route: 048
  5. RADIATION THERAPY  NO DOSE FORM [Suspect]
     Indication: BRAIN NEOPLASM
     Dates: start: 20050906
  6. NUTRITIONAL SUPPLEMENTS [Concomitant]
  7. PHENERGAN [Concomitant]

REACTIONS (8)
  - ASTHENIA [None]
  - BLOOD GLUCOSE INCREASED [None]
  - HEPATIC STEATOSIS [None]
  - HEPATOTOXICITY [None]
  - MUSCULAR WEAKNESS [None]
  - POLLAKIURIA [None]
  - THIRST [None]
  - VITH NERVE PARALYSIS [None]
